FAERS Safety Report 5611789-8 (Version None)
Quarter: 2008Q1

REPORT INFORMATION
  Report Type: 
  Country: None (occurrence: None)
  Receive Date: 20080128
  Receipt Date: 20080121
  Transmission Date: 20080703
  Serious: Yes (Death)
  Sender: FDA-Public Use
  Company Number: 2008US000290

PATIENT
  Age: 46 Year
  Sex: Male

DRUGS (2)
  1. PROGRAF [Suspect]
     Indication: RENAL TRANSPLANT
     Dosage: ORAL
     Route: 048
  2. MYCOPHENOLATE MOFETIL [Concomitant]

REACTIONS (1)
  - DEATH [None]
